FAERS Safety Report 14322259 (Version 1)
Quarter: 2017Q4

REPORT INFORMATION
  Report Type: Report from Study
  Country: CA (occurrence: CA)
  Receive Date: 20171225
  Receipt Date: 20171225
  Transmission Date: 20180321
  Serious: Yes (Disabling, Other)
  Sender: FDA-Public Use
  Company Number: CA-AMGEN-CANSL2017181857

PATIENT
  Age: 73 Year
  Sex: Male
  Weight: 92 kg

DRUGS (12)
  1. FOLIC [Concomitant]
     Active Substance: FOLIC ACID
     Dosage: UNK
  2. METFORMIN [Concomitant]
     Active Substance: METFORMIN HYDROCHLORIDE
     Indication: DIABETES MELLITUS
     Dosage: 850+500, UNK
  3. AMLODIPINE [Concomitant]
     Active Substance: AMLODIPINE BESYLATE
     Dosage: 10, UNK
  4. PANTOLOC [Concomitant]
     Active Substance: PANTOPRAZOLE SODIUM
     Dosage: 40, UNK
  5. CRESTOR [Concomitant]
     Active Substance: ROSUVASTATIN CALCIUM
     Dosage: 40, UNK
  6. REPATHA [Suspect]
     Active Substance: EVOLOCUMAB
     Indication: TYPE IIA HYPERLIPIDAEMIA
     Dosage: 140 MG/ML, UNK
     Route: 065
     Dates: start: 20171016
  7. REPATHA [Suspect]
     Active Substance: EVOLOCUMAB
     Dosage: 140 MG, Q2WK
     Route: 058
     Dates: start: 20171025, end: 20171207
  8. VALSARTAN. [Concomitant]
     Active Substance: VALSARTAN
     Dosage: 80, UNK
  9. ASAPHEN [Concomitant]
     Active Substance: ASPIRIN
     Dosage: 80, UNK
  10. METHOTREXATE. [Concomitant]
     Active Substance: METHOTREXATE
     Dosage: UNK
  11. EZETROL [Concomitant]
     Active Substance: EZETIMIBE
     Dosage: 10, UNK
  12. GLYBURIDE. [Concomitant]
     Active Substance: GLYBURIDE
     Dosage: 4, UNK

REACTIONS (7)
  - Muscular weakness [Unknown]
  - Muscle spasms [Not Recovered/Not Resolved]
  - Asthenia [Unknown]
  - Renal failure [Unknown]
  - Gait inability [Recovered/Resolved]
  - Paralysis [Unknown]
  - Musculoskeletal disorder [Unknown]

NARRATIVE: CASE EVENT DATE: 2017
